FAERS Safety Report 19787626 (Version 2)
Quarter: 2021Q4

REPORT INFORMATION
  Report Type: Spontaneous
  Country: US (occurrence: US)
  Receive Date: 20210903
  Receipt Date: 20211026
  Transmission Date: 20220303
  Serious: Yes (Death, Other)
  Sender: FDA-Public Use
  Company Number: US-PFIZER INC-2021863768

PATIENT
  Age: 75 Year
  Sex: Male

DRUGS (2)
  1. RETACRIT [Suspect]
     Active Substance: EPOETIN ALFA-EPBX
     Indication: Pancreatic carcinoma
     Dosage: 40000 IU/ML
  2. RETACRIT [Suspect]
     Active Substance: EPOETIN ALFA-EPBX
     Dosage: 40000 IU, WEEKLY

REACTIONS (13)
  - Death [Fatal]
  - Asthenia [Unknown]
  - Nausea [Unknown]
  - Eating disorder [Unknown]
  - Weight decreased [Unknown]
  - Pain [Unknown]
  - Mobility decreased [Unknown]
  - Depressed mood [Unknown]
  - Fall [Unknown]
  - Speech disorder [Unknown]
  - Neoplasm progression [Unknown]
  - Off label use [Unknown]
  - Product prescribing error [Unknown]

NARRATIVE: CASE EVENT DATE: 20210101
